FAERS Safety Report 8475211-9 (Version None)
Quarter: 2012Q2

REPORT INFORMATION
  Report Type: 
  Country: None (occurrence: None)
  Receive Date: 20120628
  Receipt Date: 20120619
  Transmission Date: 20120825
  Serious: Yes (Other)
  Sender: FDA-Public Use
  Company Number: US-JNJFOC-20120514166

PATIENT
  Sex: Female
  Weight: 53.8 kg

DRUGS (2)
  1. INFLIXIMAB, RECOMBINANT [Suspect]
     Indication: CROHN'S DISEASE
     Route: 042
     Dates: start: 20090213, end: 20090401
  2. HUMIRA [Concomitant]
     Dates: start: 20100326

REACTIONS (1)
  - ADENOCARCINOMA [None]
